FAERS Safety Report 10495298 (Version 2)
Quarter: 2014Q4

REPORT INFORMATION
  Report Type: Report from Study
  Country: DE (occurrence: DE)
  Receive Date: 20141003
  Receipt Date: 20141104
  Transmission Date: 20150528
  Serious: Yes (Hospitalization)
  Sender: FDA-Public Use
  Company Number: DE-ABBVIE-14K-062-1289136-00

PATIENT
  Age: 27 Year
  Sex: Female
  Weight: 60 kg

DRUGS (7)
  1. ACICLOVIR [Suspect]
     Active Substance: ACYCLOVIR
     Indication: PRODUCT USED FOR UNKNOWN INDICATION
     Route: 065
     Dates: start: 20140602, end: 20140610
  2. HUMIRA [Suspect]
     Active Substance: ADALIMUMAB
     Route: 058
     Dates: start: 2014, end: 201406
  3. HUMIRA [Suspect]
     Active Substance: ADALIMUMAB
     Route: 058
     Dates: start: 201407
  4. AZATHIOPRINE/6-MP [Concomitant]
     Indication: CROHN^S DISEASE
  5. HUMIRA [Suspect]
     Active Substance: ADALIMUMAB
     Dosage: WEEK 2
     Route: 058
     Dates: start: 2014, end: 2014
  6. HUMIRA [Suspect]
     Active Substance: ADALIMUMAB
     Indication: CROHN^S DISEASE
     Dosage: WEEK 0
     Route: 058
     Dates: start: 20140317, end: 20140317
  7. MUCOFALK [Concomitant]
     Indication: CROHN^S DISEASE

REACTIONS (2)
  - Herpes simplex [Recovered/Resolved]
  - Fistula [Unknown]

NARRATIVE: CASE EVENT DATE: 20140602
